FAERS Safety Report 12551436 (Version 1)
Quarter: 2016Q3

REPORT INFORMATION
  Report Type: Spontaneous
  Country: ES (occurrence: ES)
  Receive Date: 20160713
  Receipt Date: 20160713
  Transmission Date: 20161109
  Serious: Yes (Other)
  Sender: FDA-Public Use
  Company Number: ES-009507513-1606ESP014738

PATIENT
  Age: 59 Year
  Sex: Female

DRUGS (5)
  1. TRANKIMAZIN [Concomitant]
     Active Substance: ALPRAZOLAM
     Indication: DEPRESSION
     Dosage: 1 MG, Q12H
     Route: 048
     Dates: start: 2010
  2. FOSAVANCE [Suspect]
     Active Substance: ALENDRONATE SODIUM\CHOLECALCIFEROL
     Indication: OSTEOPOROSIS
     Dosage: STRENGTH (70 MG/5600 IU) DAILY (DOSE UNKNOWN)
     Route: 048
     Dates: start: 201603
  3. LORAZEPAM. [Concomitant]
     Active Substance: LORAZEPAM
     Indication: DEPRESSION
     Dosage: 1 MG DAILY
     Route: 048
     Dates: start: 2010
  4. LORAZEPAM. [Concomitant]
     Active Substance: LORAZEPAM
     Dosage: 0.5 MG, QD
     Route: 048
  5. LIMOVAN [Concomitant]
     Indication: SLEEP DISORDER
     Dosage: 7.5 MG, DAILY AT NIGHT
     Route: 048
     Dates: start: 2010

REACTIONS (10)
  - Oral pain [Unknown]
  - Blood parathyroid hormone increased [Unknown]
  - Constipation [Unknown]
  - Eating disorder [Unknown]
  - Urine calcium increased [Unknown]
  - Mastication disorder [Unknown]
  - Periodontitis [Not Recovered/Not Resolved]
  - Gastrointestinal disorder [Unknown]
  - Blood calcium increased [Unknown]
  - Swelling face [Recovered/Resolved]

NARRATIVE: CASE EVENT DATE: 2016
